FAERS Safety Report 5238357-4 (Version None)
Quarter: 2007Q1

REPORT INFORMATION
  Report Type: 
  Country: None (occurrence: None)
  Receive Date: 20070215
  Receipt Date: 20070205
  Transmission Date: 20070707
  Serious: Yes (Congenital Anomaly)
  Sender: FDA-Public Use
  Company Number: US-ROCHE-367771

PATIENT
  Sex: Female
  Weight: 2.5 kg

DRUGS (3)
  1. ACCUTANE [Suspect]
     Indication: DRUG USE FOR UNKNOWN INDICATION
     Dates: start: 20031215, end: 20040311
  2. ACCUTANE [Suspect]
     Dosage: PATIENT REPORTEDLY TOOK A FEW CAPSULES.
     Dates: start: 20040325, end: 20040402
  3. LEVAQUIN [Concomitant]

REACTIONS (1)
  - DEAFNESS UNILATERAL [None]
